FAERS Safety Report 9818061 (Version 1)
Quarter: 2014Q1

REPORT INFORMATION
  Report Type: Spontaneous
  Country: US (occurrence: None)
  Receive Date: 20140113
  Receipt Date: 20140113
  Transmission Date: 20141002
  Serious: Yes (Other)
  Sender: FDA-Public Use
  Company Number: None

PATIENT
  Age: 46 Year
  Sex: Female
  Weight: 79.83 kg

DRUGS (10)
  1. POTIGA [Suspect]
     Indication: COMPLEX PARTIAL SEIZURES
     Route: 048
     Dates: start: 20130301, end: 20140109
  2. VIMPAT [Concomitant]
  3. MAXALT [Concomitant]
  4. BACLOFEN [Concomitant]
  5. PROPRANOLOL [Concomitant]
  6. ZOFRAN [Concomitant]
  7. LORAZEPAM [Concomitant]
  8. OMEPRAZOLE [Concomitant]
  9. LORTAB [Concomitant]
  10. CELEBREX [Concomitant]

REACTIONS (2)
  - Macular pigmentation [None]
  - Retinal disorder [None]
